FAERS Safety Report 12549416 (Version 1)
Quarter: 2016Q3

REPORT INFORMATION
  Report Type: Report from Study
  Country: JP (occurrence: JP)
  Receive Date: 20160712
  Receipt Date: 20160712
  Transmission Date: 20161109
  Serious: Yes (Hospitalization)
  Sender: FDA-Public Use
  Company Number: JP-SA-2016SA124275

PATIENT
  Age: 71 Year
  Sex: Female
  Weight: 58 kg

DRUGS (5)
  1. PLAVIX [Suspect]
     Active Substance: CLOPIDOGREL BISULFATE
     Indication: CEREBROVASCULAR ACCIDENT
     Route: 065
     Dates: start: 20130129, end: 20130812
  2. DIOVAN [Concomitant]
     Active Substance: VALSARTAN
     Dates: start: 20130829
  3. PLAVIX [Suspect]
     Active Substance: CLOPIDOGREL BISULFATE
     Indication: CEREBROVASCULAR ACCIDENT
     Route: 065
     Dates: start: 20130829
  4. DIOVAN [Concomitant]
     Active Substance: VALSARTAN
     Dates: end: 20130812
  5. PLAVIX [Suspect]
     Active Substance: CLOPIDOGREL BISULFATE
     Indication: CEREBROVASCULAR ACCIDENT
     Route: 065
     Dates: end: 20130128

REACTIONS (3)
  - Hepatic function abnormal [Recovering/Resolving]
  - Cholelithiasis [Recovered/Resolved]
  - Condition aggravated [Recovering/Resolving]

NARRATIVE: CASE EVENT DATE: 20130307
